FAERS Safety Report 9916024 (Version 1)
Quarter: 2014Q1

REPORT INFORMATION
  Report Type: Report from Study
  Country: IL (occurrence: IL)
  Receive Date: 20140221
  Receipt Date: 20140221
  Transmission Date: 20141002
  Serious: Yes (Other)
  Sender: FDA-Public Use
  Company Number: IL-ROCHE-1050095

PATIENT
  Age: 57 Year
  Sex: Male

DRUGS (6)
  1. BEVACIZUMAB [Suspect]
     Indication: COLON CANCER METASTATIC
     Route: 065
     Dates: start: 20090426, end: 201103
  2. BEVACIZUMAB [Suspect]
     Route: 065
     Dates: start: 20110405
  3. CAPECITABINE [Suspect]
     Indication: COLON CANCER METASTATIC
     Route: 065
     Dates: start: 20090426, end: 201103
  4. CAPECITABINE [Suspect]
     Route: 065
     Dates: start: 20110405
  5. OXALIPLATIN [Suspect]
     Indication: COLON CANCER METASTATIC
     Route: 065
     Dates: start: 20090426, end: 201103
  6. IRINOTECAN [Suspect]
     Indication: COLON CANCER METASTATIC
     Route: 065
     Dates: start: 20110405

REACTIONS (3)
  - Ocular hyperaemia [Recovered/Resolved]
  - Diarrhoea [Recovered/Resolved]
  - Thrombosis in device [Recovered/Resolved]
